FAERS Safety Report 7605388-6 (Version None)
Quarter: 2011Q3

REPORT INFORMATION
  Report Type: 
  Country: None (occurrence: None)
  Receive Date: 20110705
  Receipt Date: 20110621
  Transmission Date: 20111222
  Serious: Yes (Life-Threatening, Hospitalization)
  Sender: FDA-Public Use
  Company Number: TCI2011A03610

PATIENT
  Age: 63 Year
  Sex: Male

DRUGS (4)
  1. JANUVIA (SITAGLIPIN PHOSPHATE HYDRATE) (ORAL ANTIDIABETICS) [Concomitant]
  2. ACTOS [Suspect]
     Indication: DIABETES MELLITUS
     Dosage: 15 MG (15 MG, 1 IN 1 D), PER ORAL
     Route: 048
     Dates: start: 20090227, end: 20110616
  3. LIPITOR [Concomitant]
  4. AMARYL (BLIMEPIRIDE) [Concomitant]

REACTIONS (1)
  - BLADDER TRANSITIONAL CELL CARCINOMA STAGE II [None]
